FAERS Safety Report 14833001 (Version 1)
Quarter: 2018Q2

REPORT INFORMATION
  Report Type: Spontaneous
  Country: US (occurrence: US)
  Receive Date: 20180416
  Receipt Date: 20180416
  Transmission Date: 20180711
  Serious: Yes (Life-Threatening, Hospitalization)
  Sender: FDA-Public Use
  Company Number: None

PATIENT
  Age: 39 Year
  Sex: Female
  Weight: 55.1 kg

DRUGS (6)
  1. RIFAMPIN 300MG BID [Concomitant]
     Dates: start: 20180415
  2. KPHOS NEUTRAL TABLETS [Concomitant]
     Dates: start: 20180415
  3. CEFAZOLIN 2G TID [Concomitant]
     Dates: start: 20180414
  4. PRECEDEX [Concomitant]
     Active Substance: DEXMEDETOMIDINE HYDROCHLORIDE
     Dates: start: 20180413
  5. FERRLECIT [Suspect]
     Active Substance: SODIUM FERRIC GLUCONATE COMPLEX
     Indication: IRON DEFICIENCY ANAEMIA
     Route: 042
     Dates: start: 20180415, end: 20180415
  6. LACTATED RINGERS SOLUTION [Concomitant]
     Active Substance: CALCIUM CHLORIDE\POTASSIUM CHLORIDE\SODIUM CHLORIDE\SODIUM LACTATE
     Dates: start: 20180412

REACTIONS (7)
  - Sensation of blood flow [None]
  - Headache [None]
  - Arrhythmia [None]
  - Anxiety [None]
  - Unresponsive to stimuli [None]
  - Pulse absent [None]
  - Cardio-respiratory arrest [None]

NARRATIVE: CASE EVENT DATE: 20180415
